FAERS Safety Report 23357412 (Version 1)
Quarter: 2024Q1

REPORT INFORMATION
  Report Type: Spontaneous
  Country: CN (occurrence: CN)
  Receive Date: 20240102
  Receipt Date: 20240102
  Transmission Date: 20240409
  Serious: Yes (Life-Threatening, Other)
  Sender: FDA-Public Use
  Company Number: CN-BAYER-2024A000409

PATIENT
  Age: 73 Year
  Sex: Male

DRUGS (1)
  1. ULTRAVIST [Suspect]
     Active Substance: IOPROMIDE
     Indication: Angiocardiogram
     Dosage: 72 ML, ONCE, AT A FLOW OF 4.5ML/S
     Route: 042
     Dates: start: 20231227, end: 20231227

REACTIONS (3)
  - Anaphylactoid reaction [Recovering/Resolving]
  - Muscular weakness [None]
  - Sneezing [None]

NARRATIVE: CASE EVENT DATE: 20231227
